FAERS Safety Report 16646104 (Version 1)
Quarter: 2019Q3

REPORT INFORMATION
  Report Type: Spontaneous
  Country: US (occurrence: US)
  Receive Date: 20190730
  Receipt Date: 20190730
  Transmission Date: 20191004
  Serious: No
  Sender: FDA-Public Use
  Company Number: US-GLENMARK PHARMACEUTICALS-2019GMK041085

PATIENT

DRUGS (2)
  1. MUPIROCIN OINTMENT USP, 2% [Suspect]
     Active Substance: MUPIROCIN
     Indication: SKIN INFECTION
     Dosage: UNK, PRN (1 IN THE MORNING AND 1 BEFORE GOING TO BED)
     Route: 061
     Dates: start: 201904
  2. MUPIROCIN OINTMENT USP, 2% [Suspect]
     Active Substance: MUPIROCIN
     Indication: POST PROCEDURAL INFECTION
     Dosage: UNK, PRN (1 IN THE MORNING AND 1 BEFORE GOING TO BED)
     Route: 061
     Dates: start: 20190406

REACTIONS (2)
  - Drug effective for unapproved indication [Unknown]
  - Product packaging quantity issue [Unknown]

NARRATIVE: CASE EVENT DATE: 201904
